FAERS Safety Report 5466840-5 (Version None)
Quarter: 2007Q3

REPORT INFORMATION
  Report Type: 
  Country: None (occurrence: None)
  Receive Date: 20070925
  Receipt Date: 20070917
  Transmission Date: 20080115
  Serious: Yes (Hospitalization)
  Sender: FDA-Public Use
  Company Number: US-BRISTOL-MYERS SQUIBB COMPANY-13910294

PATIENT
  Age: 60 Year
  Sex: Female

DRUGS (25)
  1. TAXOL [Suspect]
     Dosage: ACTUAL DOSE GIVEN 428 MG
     Route: 042
     Dates: start: 20070709, end: 20070709
  2. CARBOPLATIN [Suspect]
     Dosage: 6 AUC
     Route: 042
     Dates: start: 20070709, end: 20070709
  3. VP-16 [Suspect]
     Dosage: 50/100
     Route: 048
     Dates: start: 20070709, end: 20070711
  4. GLUCOTROL [Concomitant]
     Indication: DIABETES MELLITUS
     Dates: start: 20060101
  5. METFORMIN HCL [Concomitant]
     Indication: DIABETES MELLITUS
     Dates: start: 20060101
  6. TOPROL-XL [Concomitant]
     Indication: HYPERTENSION
     Dates: start: 20060101
  7. OXYCONTIN [Concomitant]
     Indication: PAIN
     Dosage: UNKNOWN DOSE TAKEN ON 20 JULY 2007
     Dates: start: 20070721
  8. PROTONIX [Concomitant]
     Indication: NAUSEA
     Dosage: TAKEN ON 03-AUG-2007,INDICATION:PREVENTION OF GASTRIC EFFLUX.
     Dates: start: 20070719
  9. ACTOS [Concomitant]
     Indication: DIABETES MELLITUS
     Dates: start: 20060101
  10. COUMADIN [Concomitant]
     Indication: THROMBOSIS PROPHYLAXIS
     Dates: start: 20070804
  11. KYTRIL [Concomitant]
     Indication: NAUSEA
  12. PROCRIT [Concomitant]
     Indication: ANAEMIA
     Dosage: ALSO TAKEN FROM 31 JULY 2007 TILL UNKNOWN DATE.
     Dates: start: 20070809
  13. K-DUR 10 [Concomitant]
     Indication: MINERAL SUPPLEMENTATION
  14. ATIVAN [Concomitant]
     Indication: NAUSEA
     Dates: start: 20070804, end: 20070804
  15. DILAUDID [Concomitant]
     Indication: PAIN
     Dosage: DILAUDID(ORAL),START DATE:JULY 17 2007
  16. LOVENOX [Concomitant]
     Indication: THROMBOSIS
     Dates: start: 20070803, end: 20070808
  17. COMPAZINE [Concomitant]
     Indication: NAUSEA
     Dates: start: 20070803, end: 20070807
  18. NEUPOGEN [Concomitant]
     Indication: FEBRILE NEUTROPENIA
     Dates: start: 20070716, end: 20070719
  19. NEURONTIN [Concomitant]
     Indication: PAIN
     Dates: start: 20070722
  20. INSULIN SLIDING SCALE [Concomitant]
     Indication: DIABETES MELLITUS
     Dates: start: 20070718, end: 20070731
  21. LACTULOSE [Concomitant]
     Indication: CONSTIPATION
     Dates: start: 20070723
  22. SENOKOT [Concomitant]
     Indication: CONSTIPATION PROPHYLAXIS
     Dates: start: 20070716
  23. PRILOSEC [Concomitant]
     Dates: start: 20070731
  24. PHENERGAN HCL [Concomitant]
     Indication: NAUSEA
     Dates: start: 20070709
  25. PREDNISONE [Concomitant]
     Indication: INCREASED APPETITE
     Dates: start: 20070731

REACTIONS (4)
  - DYSPNOEA [None]
  - FEBRILE NEUTROPENIA [None]
  - PAIN [None]
  - THROMBOSIS [None]
